FAERS Safety Report 11397174 (Version 4)
Quarter: 2015Q4

REPORT INFORMATION
  Report Type: Spontaneous
  Country: US (occurrence: US)
  Receive Date: 20150819
  Receipt Date: 20151112
  Transmission Date: 20160304
  Serious: Yes (Hospitalization, Other)
  Sender: FDA-Public Use
  Company Number: US-ELI_LILLY_AND_COMPANY-US201508004850

PATIENT

DRUGS (9)
  1. VERSED [Concomitant]
     Active Substance: MIDAZOLAM HYDROCHLORIDE
     Indication: SEDATION
  2. ALDOMET [Concomitant]
     Active Substance: METHYLDOPA
     Route: 015
  3. SUCROSE [Concomitant]
     Active Substance: SUCROSE
     Indication: PAIN
  4. ZINC OXIDE. [Concomitant]
     Active Substance: ZINC OXIDE
     Indication: IRRITABILITY
  5. GENTAMICIN. [Concomitant]
     Active Substance: GENTAMICIN
     Indication: PRODUCT USED FOR UNKNOWN INDICATION
  6. PROZAC [Suspect]
     Active Substance: FLUOXETINE HYDROCHLORIDE
     Indication: PRODUCT USED FOR UNKNOWN INDICATION
     Dosage: UNK
     Route: 064
     Dates: start: 2009, end: 2014
  7. MAGNEVIST [Concomitant]
     Active Substance: GADOPENTETATE DIMEGLUMINE
     Indication: PRODUCT USED FOR UNKNOWN INDICATION
  8. INSULIN [Concomitant]
     Active Substance: INSULIN NOS
     Route: 064
  9. AMPICILLIN [Concomitant]
     Active Substance: AMPICILLIN
     Indication: PRODUCT USED FOR UNKNOWN INDICATION

REACTIONS (13)
  - Respiratory distress [Unknown]
  - Patent ductus arteriosus [Unknown]
  - Ventricular hypertrophy [Unknown]
  - Foetal hypokinesia [Unknown]
  - Feeding disorder of infancy or early childhood [Unknown]
  - Mitral valve incompetence [Unknown]
  - Cystic fibrosis [Unknown]
  - Meconium in amniotic fluid [Unknown]
  - Pulmonary valve stenosis [Unknown]
  - Foetal exposure during pregnancy [Recovered/Resolved]
  - Atrial septal defect [Unknown]
  - Cerebral haemorrhage neonatal [Unknown]
  - Cardiomyopathy [Unknown]
